FAERS Safety Report 5207714-4 (Version None)
Quarter: 2006Q4

REPORT INFORMATION
  Report Type: 
  Country: None (occurrence: None)
  Receive Date: 20061030
  Receipt Date: 20060812
  Transmission Date: 20070319
  Serious: No
  Sender: FDA-Public Use
  Company Number: 2006CT000696

PATIENT
  Age: 10 Year
  Sex: Male
  Weight: 35.6074 kg

DRUGS (6)
  1. VENTAVIS [Suspect]
     Indication: PULMONARY HYPERTENSION
     Dosage: 2.5 UG; 7XD; INH; SEE IMAGE
     Route: 055
     Dates: start: 20060718, end: 20060724
  2. VENTAVIS [Suspect]
     Indication: PULMONARY HYPERTENSION
     Dosage: 2.5 UG; 7XD; INH; SEE IMAGE
     Route: 055
     Dates: start: 20060725
  3. ZYRTEC [Concomitant]
  4. ASPIRIN [Concomitant]
  5. TRACLEER [Concomitant]
  6. REMODULIN [Concomitant]

REACTIONS (6)
  - ABDOMINAL PAIN UPPER [None]
  - ARTHROPOD BITE [None]
  - NAUSEA [None]
  - PYREXIA [None]
  - SWELLING [None]
  - URTICARIA [None]
